FAERS Safety Report 12010481 (Version 3)
Quarter: 2016Q1

REPORT INFORMATION
  Report Type: Spontaneous
  Country: US (occurrence: US)
  Receive Date: 20160205
  Receipt Date: 20160222
  Transmission Date: 20160526
  Serious: Yes (Life-Threatening)
  Sender: FDA-Public Use
  Company Number: US-BAYER-2016-023352

PATIENT
  Age: 47 Year
  Sex: Female

DRUGS (1)
  1. GADAVIST [Suspect]
     Active Substance: GADOBUTROL
     Indication: SCAN BRAIN
     Dosage: UNK UNK, ONCE

REACTIONS (5)
  - Gastric disorder [None]
  - Chest discomfort [None]
  - Dysgeusia [None]
  - Cardiac arrest [None]
  - Rib fracture [None]

NARRATIVE: CASE EVENT DATE: 20160128
